FAERS Safety Report 4556203-9 (Version None)
Quarter: 2005Q1

REPORT INFORMATION
  Report Type: 
  Country: None (occurrence: None)
  Receive Date: 20050103
  Receipt Date: 20040824
  Transmission Date: 20050727
  Serious: No
  Sender: FDA-Public Use
  Company Number: 2004UW17851

PATIENT
  Age: 54 Year
  Sex: Female
  Weight: 70.7611 kg

DRUGS (5)
  1. CRESTOR [Suspect]
     Indication: HYPERLIPIDAEMIA
     Dosage: 10 MG QD PO
     Route: 048
     Dates: start: 20030911, end: 20040415
  2. CRESTOR [Suspect]
     Indication: HYPERLIPIDAEMIA
     Dosage: 20 MG QD PO
     Route: 048
     Dates: start: 20040415, end: 20040621
  3. DIOVAN [Concomitant]
  4. TAMOXIFEN CITRATE [Concomitant]
  5. LEXAPRO [Concomitant]

REACTIONS (1)
  - JAUNDICE [None]
